FAERS Safety Report 5638865-8 (Version None)
Quarter: 2008Q1

REPORT INFORMATION
  Report Type: 
  Country: None (occurrence: None)
  Receive Date: 20080222
  Receipt Date: 20080222
  Transmission Date: 20080703
  Serious: No
  Sender: FDA-Public Use
  Company Number: None

PATIENT
  Age: 67 Year
  Sex: Male
  Weight: 76 kg

DRUGS (2)
  1. LINEZOLID [Suspect]
     Indication: PROSTATITIS
     Dosage: 600MG BID PO
     Route: 048
     Dates: start: 20080118, end: 20080124
  2. LINEZOLID [Suspect]
     Indication: URINARY TRACT INFECTION
     Dosage: 600MG BID PO
     Route: 048
     Dates: start: 20080118, end: 20080124

REACTIONS (2)
  - ANAEMIA [None]
  - LEUKOPENIA [None]
